FAERS Safety Report 15479550 (Version 1)
Quarter: 2018Q4

REPORT INFORMATION
  Report Type: Spontaneous
  Country: DE (occurrence: DE)
  Receive Date: 20181009
  Receipt Date: 20181009
  Transmission Date: 20190205
  Serious: Yes (Congenital Anomaly)
  Sender: FDA-Public Use
  Company Number: DE-TEVA-2018-DE-962102

PATIENT
  Age: 1 Day
  Sex: Male
  Weight: 3.97 kg

DRUGS (4)
  1. METFORMIN [Suspect]
     Active Substance: METFORMIN HYDROCHLORIDE
     Indication: PRODUCT USED FOR UNKNOWN INDICATION
     Dosage: 1000 [MG/D ]/ REDUCTION DURING PREGNANCY TO 500 MG/D
     Route: 064
  2. BOOSTRIX POLIO [Concomitant]
     Active Substance: DIPHTHERIA AND TETANUS TOXOIDS AND ACELLULAR PERTUSSIS ADSORBED AND INACTIVATED POLIOVIRUS VACCINE
     Indication: IMMUNISATION
     Route: 064
     Dates: start: 20170914, end: 20170914
  3. IBUPROFEN. [Concomitant]
     Active Substance: IBUPROFEN
     Indication: MIGRAINE
     Dosage: 800 [MG/D ]/ IF REQUIRED, DOSAGE 60-800 MG/D
     Route: 064
  4. PARACETAMOL [Concomitant]
     Active Substance: ACETAMINOPHEN
     Indication: MIGRAINE
     Dosage: 1000 [MG/D ]/ IF REQUIRED. VERY SELDOM, MAX 1000 MG/D
     Route: 064

REACTIONS (2)
  - Haemangioma congenital [Unknown]
  - Congenital nipple anomaly [Not Recovered/Not Resolved]

NARRATIVE: CASE EVENT DATE: 20180409
